FAERS Safety Report 7886437-7 (Version None)
Quarter: 2011Q4

REPORT INFORMATION
  Report Type: 
  Country: None (occurrence: None)
  Receive Date: 20111102
  Receipt Date: 20110705
  Transmission Date: 20120403
  Serious: No
  Sender: FDA-Public Use
  Company Number: US-AMGEN-USASP2011033896

PATIENT
  Sex: Female

DRUGS (17)
  1. PEPCID [Concomitant]
     Dosage: UNK
  2. PULMICORT [Concomitant]
     Dosage: UNK
  3. XANAX [Concomitant]
     Dosage: UNK
  4. ALBUTEROL [Concomitant]
     Dosage: UNK
  5. ENBREL [Suspect]
     Indication: RHEUMATOID ARTHRITIS
     Dosage: 50 MG, QWK
     Dates: start: 20100201
  6. EPIPEN [Concomitant]
     Dosage: UNK
  7. CALCIUM WITH VITAMIN D             /00944201/ [Concomitant]
     Dosage: UNK
  8. AMLODIPINE [Concomitant]
     Dosage: UNK
  9. METHOTREXATE [Concomitant]
     Dosage: UNK
  10. SINGULAIR [Concomitant]
     Dosage: UNK
  11. ASPIRIN [Concomitant]
     Dosage: UNK
  12. CELEXA [Concomitant]
     Dosage: UNK
  13. OMEGA 3                            /00931501/ [Concomitant]
     Dosage: UNK
  14. DOVONEX [Concomitant]
     Dosage: UNK
  15. FOLIC ACID [Concomitant]
  16. PERCOCET [Concomitant]
     Dosage: UNK
  17. PRILOSEC [Concomitant]
     Dosage: UNK

REACTIONS (3)
  - CANDIDIASIS [None]
  - INHALATION THERAPY [None]
  - WRONG TECHNIQUE IN DRUG USAGE PROCESS [None]
